FAERS Safety Report 16660618 (Version 1)
Quarter: 2019Q3

REPORT INFORMATION
  Report Type: Spontaneous
  Country: US (occurrence: US)
  Receive Date: 20190802
  Receipt Date: 20190802
  Transmission Date: 20191004
  Serious: No
  Sender: FDA-Public Use
  Company Number: US-TEVA-2019-US-1085243

PATIENT
  Sex: Female

DRUGS (1)
  1. LIDOCAINE ACTAVIS [Suspect]
     Active Substance: LIDOCAINE
     Indication: HERPES ZOSTER
     Route: 062

REACTIONS (3)
  - Drug ineffective [Unknown]
  - Pain [Unknown]
  - Product adhesion issue [Unknown]
